FAERS Safety Report 5090945-4 (Version None)
Quarter: 2006Q3

REPORT INFORMATION
  Report Type: 
  Country: None (occurrence: None)
  Receive Date: 20060823
  Receipt Date: 20060807
  Transmission Date: 20061208
  Serious: No
  Sender: FDA-Public Use
  Company Number: TPA2006A01292

PATIENT
  Age: 62 Year
  Sex: Male
  Weight: 89.8122 kg

DRUGS (3)
  1. ACTOS [Suspect]
     Indication: DIABETES MELLITUS NON-INSULIN-DEPENDENT
     Dosage: 15 MG, 1 IN 1 D, PER ORAL
     Route: 048
     Dates: start: 20040901
  2. ACTOS [Suspect]
  3. ASPIRIN (ACETYLSALICYLIC ACID) (80 MILLIGRAM) [Concomitant]

REACTIONS (5)
  - DYSPEPSIA [None]
  - PHARYNGOLARYNGEAL PAIN [None]
  - POOR QUALITY DRUG ADMINISTERED [None]
  - VOMITING [None]
  - WEIGHT DECREASED [None]
